FAERS Safety Report 4277298-6 (Version None)
Quarter: 2004Q1

REPORT INFORMATION
  Report Type: 
  Country: None (occurrence: None)
  Receive Date: 20040121
  Receipt Date: 20040121
  Transmission Date: 20041129
  Serious: Yes (Life-Threatening, Hospitalization, Disabling)
  Sender: FDA-Public Use
  Company Number: None

PATIENT
  Sex: Male
  Weight: 74.8435 kg

DRUGS (1)
  1. AQUATAB C TABLETS MFD BY ADAMS LABS [Suspect]
     Indication: SINUS CONGESTION
     Dosage: 1 TAB TWICE A DAY
     Dates: start: 20020204, end: 20020308

REACTIONS (26)
  - ABASIA [None]
  - ACTIVITIES OF DAILY LIVING IMPAIRED [None]
  - ARTHRALGIA [None]
  - BRAIN NEOPLASM [None]
  - CALCINOSIS [None]
  - CEREBROVASCULAR ACCIDENT [None]
  - CHEST PAIN [None]
  - DIFFICULTY IN WALKING [None]
  - DYSPNOEA [None]
  - DYSURIA [None]
  - FAECES DISCOLOURED [None]
  - FEELING HOT [None]
  - GENERAL PHYSICAL HEALTH DETERIORATION [None]
  - HEADACHE [None]
  - HEARING IMPAIRED [None]
  - HYPOAESTHESIA [None]
  - INCONTINENCE [None]
  - NERVOUS SYSTEM DISORDER [None]
  - NUCLEAR MAGNETIC RESONANCE IMAGING ABNORMAL [None]
  - PAIN [None]
  - POLLAKIURIA [None]
  - PYREXIA [None]
  - SPEECH DISORDER [None]
  - SWELLING FACE [None]
  - TREMOR [None]
  - VISUAL DISTURBANCE [None]
